FAERS Safety Report 5079373-5 (Version None)
Quarter: 2006Q3

REPORT INFORMATION
  Report Type: 
  Country: None (occurrence: None)
  Receive Date: 20060808
  Receipt Date: 20060710
  Transmission Date: 20061208
  Serious: Yes (Death, Life-Threatening, Hospitalization, Other)
  Sender: FDA-Public Use
  Company Number: 2005063239

PATIENT
  Age: 45 Year
  Sex: Male

DRUGS (4)
  1. BEXTRA [Suspect]
     Indication: PAIN
     Dosage: 20 MG (20 MG, 1 IN 1D), ORAL
     Route: 048
     Dates: start: 20030106, end: 20030414
  2. XANAX [Concomitant]
  3. LORTAB [Concomitant]
  4. ZESTRIL [Concomitant]

REACTIONS (5)
  - CARDIAC FAILURE [None]
  - CARDIO-RESPIRATORY ARREST [None]
  - HAEMOPTYSIS [None]
  - NASOPHARYNGITIS [None]
  - SUDDEN DEATH [None]
